FAERS Safety Report 10881814 (Version 1)
Quarter: 2015Q1

REPORT INFORMATION
  Report Type: Spontaneous
  Country: US (occurrence: None)
  Receive Date: 20150225
  Receipt Date: 20150225
  Transmission Date: 20150721
  Serious: Yes (Other)
  Sender: FDA-Public Use
  Company Number: None

PATIENT
  Age: 61 Year
  Sex: Female
  Weight: 46.72 kg

DRUGS (2)
  1. IPRIFLAVONE [Suspect]
     Active Substance: IPRIFLAVONE
     Indication: OSTEOPOROSIS
     Dosage: 1 CAPSULES, TWICE DAILY, TAKEN BY MOUTH
     Route: 048
  2. BONE-UP CALCIUM [Concomitant]

REACTIONS (3)
  - Fear of disease [None]
  - Lymphadenopathy [None]
  - Anxiety [None]

NARRATIVE: CASE EVENT DATE: 20150205
